FAERS Safety Report 10186210 (Version 2)
Quarter: 2014Q2

REPORT INFORMATION
  Report Type: Report from Study
  Country: FR (occurrence: FR)
  Receive Date: 20140521
  Receipt Date: 20140527
  Transmission Date: 20141212
  Serious: Yes (Other)
  Sender: FDA-Public Use
  Company Number: FR-JNJFOC-20140509500

PATIENT
  Age: 63 Year
  Sex: Female
  Weight: 75 kg

DRUGS (9)
  1. SIMEPREVIR [Suspect]
     Indication: LIVER DISORDER
     Route: 048
     Dates: start: 20140218
  2. SIMEPREVIR [Suspect]
     Indication: FIBROSIS
     Route: 048
     Dates: start: 20140218
  3. SIMEPREVIR [Suspect]
     Indication: HEPATITIS C
     Route: 048
     Dates: start: 20140218
  4. SOFOSBUVIR [Concomitant]
     Indication: LIVER DISORDER
     Route: 048
     Dates: start: 20140218
  5. SOFOSBUVIR [Concomitant]
     Indication: FIBROSIS
     Route: 048
     Dates: start: 20140218
  6. SOFOSBUVIR [Concomitant]
     Indication: HEPATITIS C
     Route: 048
     Dates: start: 20140218
  7. SPIRONOLACTONE [Concomitant]
     Indication: SODIUM RETENTION
     Route: 048
     Dates: start: 201307
  8. FUROSEMIDE [Concomitant]
     Indication: ASCITES
     Route: 048
     Dates: start: 201307
  9. PARACETAMOL [Concomitant]
     Indication: BACK PAIN
     Dosage: O TO 3 G PER DAY
     Route: 065
     Dates: start: 201401

REACTIONS (3)
  - Platelet count decreased [Unknown]
  - Off label use [Unknown]
  - Photosensitivity reaction [Recovered/Resolved]
